FAERS Safety Report 4353473-7 (Version None)
Quarter: 2004Q2

REPORT INFORMATION
  Report Type: 
  Country: None (occurrence: None)
  Receive Date: 20040430
  Receipt Date: 20040419
  Transmission Date: 20050107
  Serious: Yes (Death)
  Sender: FDA-Public Use
  Company Number: 2004025153

PATIENT
  Age: 73 Year
  Sex: Male

DRUGS (3)
  1. GEODON [Suspect]
     Indication: AGITATION
     Dosage: (ONE DOSE), INTRAMUSCULAR
     Route: 030
     Dates: start: 20040101, end: 20040101
  2. DIGOXIN [Concomitant]
  3. WARFARIN SODIUM [Concomitant]

REACTIONS (1)
  - COMA [None]
